FAERS Safety Report 7393996-X (Version None)
Quarter: 2011Q2

REPORT INFORMATION
  Report Type: 
  Country: None (occurrence: None)
  Receive Date: 20110405
  Receipt Date: 20100728
  Transmission Date: 20111010
  Serious: No
  Sender: FDA-Public Use
  Company Number: US-AMGEN-KDL427869

PATIENT
  Sex: Female

DRUGS (3)
  1. CISPLATIN [Concomitant]
     Dosage: UNK UNK, UNK
  2. NEULASTA [Suspect]
     Indication: CHEMOTHERAPY
     Dosage: 6 MG, UNK
     Dates: start: 20100601
  3. ETOPOSIDE [Concomitant]
     Dosage: UNK UNK, UNK

REACTIONS (1)
  - BONE PAIN [None]
